FAERS Safety Report 12155291 (Version 2)
Quarter: 2016Q3

REPORT INFORMATION
  Report Type: Report from Study
  Country: DE (occurrence: DE)
  Receive Date: 20160307
  Receipt Date: 20160711
  Transmission Date: 20161109
  Serious: Yes (Hospitalization, Other)
  Sender: FDA-Public Use
  Company Number: DE-BIOGEN-2013BI015394

PATIENT
  Age: 40 Year
  Sex: Female
  Weight: 74 kg

DRUGS (2)
  1. TYSABRI [Suspect]
     Active Substance: NATALIZUMAB
     Indication: MULTIPLE SCLEROSIS
     Route: 042
     Dates: start: 20080130, end: 20130207
  2. THYROXIN-JODID [Concomitant]
     Indication: HYPOTHYROIDISM
     Route: 065

REACTIONS (8)
  - Progressive multifocal leukoencephalopathy [Unknown]
  - Vomiting [Unknown]
  - Vertigo [Unknown]
  - Myelitis [Unknown]
  - Immune reconstitution inflammatory syndrome [Recovered/Resolved]
  - Gait disturbance [Unknown]
  - JC virus granule cell neuronopathy [Not Recovered/Not Resolved]
  - Gastritis [Recovered/Resolved]

NARRATIVE: CASE EVENT DATE: 201105
